FAERS Safety Report 11199028 (Version 1)
Quarter: 2015Q2

REPORT INFORMATION
  Report Type: Other
  Country: IR (occurrence: IR)
  Receive Date: 20150618
  Receipt Date: 20150618
  Transmission Date: 20150821
  Serious: Yes (Other)
  Sender: FDA-Public Use
  Company Number: IR-LUPIN PHARMACEUTICALS INC.-2015-01315

PATIENT
  Age: 35 Year
  Sex: Male

DRUGS (2)
  1. STREPTOMYCIN [Concomitant]
     Active Substance: STREPTOMYCIN\STREPTOMYCIN SULFATE
     Indication: BRUCELLOSIS
     Dosage: 1G
  2. CIPROFLOXACIN. [Suspect]
     Active Substance: CIPROFLOXACIN
     Indication: BRUCELLOSIS
     Route: 048

REACTIONS (1)
  - Hepatotoxicity [Recovered/Resolved]
